FAERS Safety Report 6772594-2 (Version None)
Quarter: 2010Q2

REPORT INFORMATION
  Report Type: 
  Country: None (occurrence: None)
  Receive Date: 20100616
  Receipt Date: 20091221
  Transmission Date: 20101027
  Serious: No
  Sender: FDA-Public Use
  Company Number: US-ASTRAZENECA-2009SE33272

PATIENT
  Age: 20 Year
  Sex: Male
  Weight: 11.8 kg

DRUGS (1)
  1. PULMICORT RESPULES [Suspect]
     Route: 055
     Dates: start: 20091119

REACTIONS (2)
  - DECREASED APPETITE [None]
  - DRUG DOSE OMISSION [None]
